FAERS Safety Report 18679453 (Version 1)
Quarter: 2020Q4

REPORT INFORMATION
  Report Type: Spontaneous
  Country: AU (occurrence: AU)
  Receive Date: 20201230
  Receipt Date: 20201230
  Transmission Date: 20210114
  Serious: Yes (Other)
  Sender: FDA-Public Use
  Company Number: AU-ADVANZ PHARMA-202012011128

PATIENT

DRUGS (6)
  1. SALAZOPYRINE [Concomitant]
     Active Substance: SULFASALAZINE
     Dosage: UNKNOWN
  2. METHOTREXATE. [Suspect]
     Active Substance: METHOTREXATE
     Indication: PRODUCT USED FOR UNKNOWN INDICATION
     Dosage: 10 MG,  QOW (EVERY OTHER WEEK )
     Route: 058
  3. XELJANZ [Concomitant]
     Active Substance: TOFACITINIB CITRATE
     Dosage: 5 MG
  4. COSENTYX [Concomitant]
     Active Substance: SECUKINUMAB
     Dosage: UNKNOWN
  5. HYDROXYCHLOROQUINE [Suspect]
     Active Substance: HYDROXYCHLOROQUINE
     Indication: PRODUCT USED FOR UNKNOWN INDICATION
     Dosage: UNKNOWN
     Route: 065
  6. MYCOPHENOLATE MOFETIL. [Suspect]
     Active Substance: MYCOPHENOLATE MOFETIL
     Indication: PRODUCT USED FOR UNKNOWN INDICATION
     Dosage: UNKNOWN
     Route: 065

REACTIONS (2)
  - Chronic cutaneous lupus erythematosus [Unknown]
  - Psoriatic arthropathy [Unknown]
